FAERS Safety Report 8609271-9 (Version None)
Quarter: 2012Q3

REPORT INFORMATION
  Report Type: 
  Country: None (occurrence: None)
  Receive Date: 20120821
  Receipt Date: 20120813
  Transmission Date: 20120928
  Serious: Yes (Hospitalization)
  Sender: FDA-Public Use
  Company Number: PHHY2012CA069982

PATIENT
  Age: 25 Year
  Sex: Female
  Weight: 50 kg

DRUGS (6)
  1. ESCITALOPRAM [Suspect]
  2. FLUOXETINE HCL [Suspect]
  3. QUETIAPINE [Suspect]
  4. OLANZAPINE [Suspect]
  5. AMITRIPTYLINE HYDROCHLORIDE [Suspect]
  6. GABAPENTIN [Suspect]

REACTIONS (10)
  - HYPOTENSION [None]
  - ELECTROCARDIOGRAM QT PROLONGED [None]
  - TACHYCARDIA [None]
  - ELECTROCARDIOGRAM QRS COMPLEX PROLONGED [None]
  - HYPOCALCAEMIA [None]
  - SUICIDE ATTEMPT [None]
  - INTENTIONAL OVERDOSE [None]
  - HYPOKALAEMIA [None]
  - COMA [None]
  - PULSE ABSENT [None]
